APPROVED DRUG PRODUCT: CLOZAPINE
Active Ingredient: CLOZAPINE
Strength: 200MG
Dosage Form/Route: TABLET;ORAL
Application: A075713 | Product #004
Applicant: SUN PHARMACEUTICAL INDUSTRIES INC
Approved: Nov 7, 2017 | RLD: No | RS: No | Type: DISCN